FAERS Safety Report 5761212-8 (Version None)
Quarter: 2008Q2

REPORT INFORMATION
  Report Type: 
  Country: None (occurrence: None)
  Receive Date: 20080606
  Receipt Date: 20080530
  Transmission Date: 20081010
  Serious: Yes (Other)
  Sender: FDA-Public Use
  Company Number: BR-ASTRAZENECA-2008UW11144

PATIENT
  Age: 67 Year
  Sex: Female
  Weight: 65 kg

DRUGS (2)
  1. SELOZOK [Suspect]
     Indication: HYPERTENSION
     Route: 048
     Dates: end: 20080526
  2. CAPTOPRIL [Concomitant]
     Indication: HYPERTENSION

REACTIONS (3)
  - BLOOD CHOLESTEROL INCREASED [None]
  - HYPERSENSITIVITY [None]
  - PRURITUS [None]
